FAERS Safety Report 7737332-5 (Version None)
Quarter: 2011Q3

REPORT INFORMATION
  Report Type: 
  Country: None (occurrence: None)
  Receive Date: 20110908
  Receipt Date: 20110827
  Transmission Date: 20111222
  Serious: No
  Sender: FDA-Public Use
  Company Number: US-B.I. PHARMACEUTICALS,INC./RIDGEFIELD-2011-BP-20940BP

PATIENT
  Age: 67 Year
  Sex: Male

DRUGS (3)
  1. SOTALOL HCL [Suspect]
     Route: 048
     Dates: start: 20110801
  2. TERAZOSIN HCL [Suspect]
     Dosage: 1 MG
     Route: 048
     Dates: start: 20110801
  3. PRADAXA [Suspect]
     Indication: ATRIAL FIBRILLATION
     Dosage: 300 MG
     Route: 048
     Dates: start: 20110801

REACTIONS (1)
  - CONSTIPATION [None]
